FAERS Safety Report 19739045 (Version 3)
Quarter: 2021Q3

REPORT INFORMATION
  Report Type: Report from Study
  Country: IT (occurrence: IT)
  Receive Date: 20210824
  Receipt Date: 20210927
  Transmission Date: 20211014
  Serious: Yes (Hospitalization, Other)
  Sender: FDA-Public Use
  Company Number: IT-MYLANLABS-2021M1054360

PATIENT
  Age: 49 Year
  Sex: Female

DRUGS (2)
  1. OBINUTUZUMAB. [Suspect]
     Active Substance: OBINUTUZUMAB
     Indication: FOLLICULAR LYMPHOMA
     Dosage: 1000 MILLIGRAM, Q21D
     Route: 042
     Dates: start: 20200612
  2. METHOTREXATE. [Suspect]
     Active Substance: METHOTREXATE
     Indication: METASTASES TO LYMPH NODES
     Dosage: ADMINISTERED AT C3D5
     Route: 065
     Dates: start: 20200804

REACTIONS (9)
  - Intentional product use issue [Unknown]
  - Constipation [Recovered/Resolved]
  - Muscle spasms [Recovered/Resolved]
  - Off label use [Unknown]
  - Paraesthesia [Not Recovered/Not Resolved]
  - Neuropathy peripheral [Recovered/Resolved]
  - Anaemia [Recovered/Resolved]
  - Acute kidney injury [Recovered/Resolved]
  - Arthralgia [Not Recovered/Not Resolved]

NARRATIVE: CASE EVENT DATE: 20200804
